FAERS Safety Report 8608877-0 (Version None)
Quarter: 2012Q3

REPORT INFORMATION
  Report Type: 
  Country: None (occurrence: None)
  Receive Date: 20120808
  Receipt Date: 20120727
  Transmission Date: 20120928
  Serious: Yes (Other)
  Sender: FDA-Public Use
  Company Number: MPS1-1000741

PATIENT
  Age: 15 Year
  Sex: Female

DRUGS (4)
  1. BETAMETHASONE [Concomitant]
  2. CHLORPHENIRAMINE TAB [Concomitant]
  3. IBUPROFEN [Concomitant]
  4. ALDURAZYME [Suspect]
     Indication: MUCOPOLYSACCHARIDOSIS I
     Dosage: 0.56 MG/KG, QW, INTRAVENOUS
     Route: 042
     Dates: start: 20090402

REACTIONS (2)
  - RESPIRATORY DISORDER [None]
  - COUGH [None]
